FAERS Safety Report 9975190 (Version 1)
Quarter: 2014Q1

REPORT INFORMATION
  Report Type: Spontaneous
  Country: GB (occurrence: GB)
  Receive Date: 20140306
  Receipt Date: 20140306
  Transmission Date: 20141002
  Serious: Yes (Death)
  Sender: FDA-Public Use
  Company Number: GB-BAXTER-2014BAX009936

PATIENT
  Age: 65 Year
  Sex: Male

DRUGS (8)
  1. CYCLOPHOSPHAMIDE INJECTION 1G [Suspect]
     Indication: CASTLEMAN^S DISEASE
  2. CISPLATIN [Suspect]
     Indication: CASTLEMAN^S DISEASE
     Route: 065
  3. CYTARABINE [Suspect]
     Indication: CASTLEMAN^S DISEASE
     Route: 065
  4. DEXAMETHASONE [Suspect]
     Indication: CASTLEMAN^S DISEASE
     Route: 065
  5. DOXORUBICIN HYDROCHLORIDE [Suspect]
     Indication: CASTLEMAN^S DISEASE
     Route: 042
  6. PREDNISONE [Suspect]
     Indication: CASTLEMAN^S DISEASE
     Route: 065
  7. RITUXIMAB [Suspect]
     Indication: CASTLEMAN^S DISEASE
     Route: 065
  8. VINCRISTINE [Suspect]
     Indication: CASTLEMAN^S DISEASE
     Route: 065

REACTIONS (1)
  - Castleman^s disease [Fatal]
